FAERS Safety Report 18002386 (Version 3)
Quarter: 2020Q4

REPORT INFORMATION
  Report Type: Spontaneous
  Country: FR (occurrence: FR)
  Receive Date: 20200709
  Receipt Date: 20201021
  Transmission Date: 20210113
  Serious: Yes (Other)
  Sender: FDA-Public Use
  Company Number: FR-MYLANLABS-2020M1062137

PATIENT
  Age: 54 Year
  Sex: Female
  Weight: 50 kg

DRUGS (5)
  1. ZECLAR 250 MG, COMPRIM? PELLICUL? [Suspect]
     Active Substance: CLARITHROMYCIN
     Indication: PNEUMONIA MYCOPLASMAL
  2. CORTANCYL [Concomitant]
     Active Substance: PREDNISONE
     Indication: ARTHRALGIA
     Dosage: 15 MILLIGRAM, QD
  3. ZECLAR 500 MG, COMPRIM? PELLICUL? [Suspect]
     Active Substance: CLARITHROMYCIN
     Indication: SYSTEMIC INFECTION
     Dosage: 250 MILLIGRAM, BID
     Route: 048
     Dates: start: 20181107, end: 20200410
  4. ZECLAR 500 MG, COMPRIM? PELLICUL? [Suspect]
     Active Substance: CLARITHROMYCIN
     Indication: PNEUMONIA MYCOPLASMAL
  5. ZECLAR 250 MG, COMPRIM? PELLICUL? [Suspect]
     Active Substance: CLARITHROMYCIN
     Indication: SYSTEMIC INFECTION
     Dosage: 500 MILLIGRAM, TID
     Route: 048
     Dates: start: 20181107, end: 20200410

REACTIONS (14)
  - Hypokalaemia [Recovered/Resolved]
  - Meningioma [Not Recovered/Not Resolved]
  - Gastrooesophageal reflux disease [Recovered/Resolved]
  - Nausea [Recovered/Resolved]
  - Dyspnoea [Recovered/Resolved]
  - Chromaturia [Recovered/Resolved]
  - Asthma [Recovered/Resolved]
  - Gastrointestinal disorder [Recovered/Resolved]
  - Dyspepsia [Recovered/Resolved]
  - Oedema [Recovered/Resolved]
  - Leukoencephalopathy [Not Recovered/Not Resolved]
  - Headache [Recovering/Resolving]
  - Eye haemorrhage [Recovering/Resolving]
  - Muscle disorder [Recovered/Resolved]

NARRATIVE: CASE EVENT DATE: 2019
